FAERS Safety Report 19652115 (Version 6)
Quarter: 2022Q2

REPORT INFORMATION
  Report Type: Report from Study
  Country: US (occurrence: US)
  Receive Date: 20210803
  Receipt Date: 20220502
  Transmission Date: 20220721
  Serious: No
  Sender: FDA-Public Use
  Company Number: NVSC2021US174159

PATIENT
  Age: 77 Year
  Sex: Male

DRUGS (3)
  1. MAYZENT [Suspect]
     Active Substance: SIPONIMOD
     Indication: Product used for unknown indication
     Dosage: 0.25 MG
     Route: 048
     Dates: start: 20210730
  2. MAYZENT [Suspect]
     Active Substance: SIPONIMOD
     Dosage: 2 MG, QD
     Route: 048
  3. MAYZENT [Suspect]
     Active Substance: SIPONIMOD
     Route: 048

REACTIONS (10)
  - Muscular weakness [Unknown]
  - Sunburn [Unknown]
  - Condition aggravated [Unknown]
  - Limb discomfort [Unknown]
  - Joint dislocation [Unknown]
  - Fall [Unknown]
  - Balance disorder [Unknown]
  - Gait disturbance [Unknown]
  - Atrioventricular block first degree [Unknown]
  - Drug ineffective [Unknown]

NARRATIVE: CASE EVENT DATE: 20210730
